FAERS Safety Report 18740005 (Version 1)
Quarter: 2021Q1

REPORT INFORMATION
  Report Type: Spontaneous
  Country: IN (occurrence: IN)
  Receive Date: 20210114
  Receipt Date: 20210114
  Transmission Date: 20210419
  Serious: Yes (Hospitalization)
  Sender: FDA-Public Use
  Company Number: IN-MYLANLABS-2021M1001594

PATIENT
  Age: 67 Year
  Sex: Female

DRUGS (2)
  1. AMIODARONE [Suspect]
     Active Substance: AMIODARONE
     Indication: ATRIAL FIBRILLATION
     Dosage: 600 MILLIGRAM, QD
     Route: 065
  2. THYROXINE [Concomitant]
     Active Substance: LEVOTHYROXINE
     Indication: HYPOTHYROIDISM
     Dosage: 125 MICROGRAM
     Route: 065

REACTIONS (5)
  - Toxicity to various agents [Recovering/Resolving]
  - Multi-organ disorder [Recovering/Resolving]
  - Pleural effusion [Recovered/Resolved]
  - Interstitial lung disease [Recovering/Resolving]
  - Product deposit [Recovering/Resolving]
